FAERS Safety Report 11048674 (Version 1)
Quarter: 2015Q2

REPORT INFORMATION
  Report Type: Spontaneous
  Country: CN (occurrence: CN)
  Receive Date: 20150420
  Receipt Date: 20150420
  Transmission Date: 20150821
  Serious: Yes (Hospitalization)
  Sender: FDA-Public Use
  Company Number: CN-JNJFOC-20150404767

PATIENT
  Age: 15 Year
  Sex: Female
  Weight: 49 kg

DRUGS (5)
  1. ALL OTHER THERAPEUTIC PRODUCTS [Suspect]
     Active Substance: UNSPECIFIED INGREDIENT
     Indication: UPPER RESPIRATORY TRACT INFECTION
     Route: 048
     Dates: start: 20141130, end: 20141203
  2. SHUANGHUANGLIAN [Suspect]
     Active Substance: HERBALS
     Indication: UPPER RESPIRATORY TRACT INFECTION
     Route: 048
     Dates: start: 20141130, end: 20141205
  3. AZITHROMYCIN [Suspect]
     Active Substance: AZITHROMYCIN ANHYDROUS
     Indication: UPPER RESPIRATORY TRACT INFECTION
     Route: 048
     Dates: start: 20141130, end: 20141202
  4. MOTRIN [Suspect]
     Active Substance: IBUPROFEN
     Indication: PYREXIA
     Route: 048
     Dates: start: 20141130, end: 20141202
  5. PUDILAN XIAOYAN [Suspect]
     Active Substance: HERBALS
     Indication: UPPER RESPIRATORY TRACT INFECTION
     Route: 048
     Dates: start: 20141130, end: 20141205

REACTIONS (4)
  - Chest discomfort [Unknown]
  - Autoimmune hepatitis [None]
  - Liver function test abnormal [Recovering/Resolving]
  - Myocarditis [Unknown]

NARRATIVE: CASE EVENT DATE: 2014
